FAERS Safety Report 4376716-2 (Version None)
Quarter: 2004Q2

REPORT INFORMATION
  Report Type: 
  Country: None (occurrence: None)
  Receive Date: 20040608
  Receipt Date: 20040526
  Transmission Date: 20050107
  Serious: Yes (Other)
  Sender: FDA-Public Use
  Company Number: 2004035634

PATIENT
  Sex: Female

DRUGS (5)
  1. GEODON [Suspect]
     Indication: BIPOLAR DISORDER
     Dosage: 40 MG (20 MG, 2 IN 1 D), ORAL
     Route: 048
     Dates: start: 20021023, end: 20040325
  2. NEURONTIN [Suspect]
     Indication: MOOD ALTERED
     Dosage: ORAL
     Route: 048
  3. CLONAZEPAM [Concomitant]
  4. DYAZIDE    (HYDROCHLOROTHIZIDE, TRIAMETERENE) [Concomitant]
  5. LORAZEPAM [Concomitant]

REACTIONS (14)
  - ABNORMAL BEHAVIOUR [None]
  - ANXIETY [None]
  - DELUSION [None]
  - DYSKINESIA [None]
  - INSOMNIA [None]
  - KNEE ARTHROPLASTY [None]
  - LOSS OF EMPLOYMENT [None]
  - MOVEMENT DISORDER [None]
  - OBSESSIVE THOUGHTS [None]
  - OBSESSIVE-COMPULSIVE DISORDER [None]
  - SOMNOLENCE [None]
  - THINKING ABNORMAL [None]
  - TOE DEFORMITY [None]
  - TREMOR [None]
